FAERS Safety Report 4752293-9 (Version None)
Quarter: 2005Q3

REPORT INFORMATION
  Report Type: 
  Country: None (occurrence: None)
  Receive Date: 20050825
  Receipt Date: 20050504
  Transmission Date: 20060218
  Serious: Yes (Hospitalization)
  Sender: FDA-Public Use
  Company Number: US-GLAXOSMITHKLINE-A0557769A

PATIENT
  Age: 21 Year
  Sex: Female
  Weight: 60.9 kg

DRUGS (3)
  1. WELLBUTRIN [Suspect]
     Indication: DEPRESSION
     Dosage: 150MG PER DAY
     Route: 048
     Dates: start: 20040610, end: 20050510
  2. UNKNOWN MEDICATION [Suspect]
  3. SYNTHROID [Concomitant]
     Dosage: 112MCG PER DAY
     Route: 048
     Dates: start: 20040601

REACTIONS (6)
  - AMNESIA [None]
  - DRUG EXPOSURE DURING PREGNANCY [None]
  - ECLAMPSIA [None]
  - GRAND MAL CONVULSION [None]
  - HEADACHE [None]
  - TONGUE BITING [None]
